FAERS Safety Report 10041587 (Version 1)
Quarter: 2014Q1

REPORT INFORMATION
  Report Type: Spontaneous
  Country: GR (occurrence: GR)
  Receive Date: 20140327
  Receipt Date: 20140327
  Transmission Date: 20141002
  Serious: Yes (Death)
  Sender: FDA-Public Use
  Company Number: GR-PFIZER INC-2014082839

PATIENT
  Age: 60 Year
  Sex: Male

DRUGS (3)
  1. TIGECYCLINE [Suspect]
     Indication: ACINETOBACTER BACTERAEMIA
     Dosage: UNK
  2. GENTAMYCIN [Suspect]
     Indication: ACINETOBACTER BACTERAEMIA
     Dosage: UNK
  3. COTRIMOXAZOLE [Suspect]
     Indication: ACINETOBACTER BACTERAEMIA
     Dosage: UNK

REACTIONS (1)
  - Drug ineffective [Fatal]
